FAERS Safety Report 8959164 (Version 3)
Quarter: 2013Q1

REPORT INFORMATION
  Report Type: Report from Study
  Country: US (occurrence: US)
  Receive Date: 20121212
  Receipt Date: 20130312
  Transmission Date: 20140127
  Serious: Yes (Hospitalization)
  Sender: FDA-Public Use
  Company Number: US-VERTEX PHARMACEUTICALS INC.-2012-025538

PATIENT
  Age: 62 Year
  Sex: Male

DRUGS (8)
  1. VX-950 (TELAPREVIR) [Suspect]
     Indication: HEPATITIS C
     Dosage: 1125 MG, BID
     Route: 048
     Dates: start: 20121126
  2. Z-PEGYLATED INTERFERON-2A [Suspect]
     Indication: HEPATITIS C
     Dosage: 180 ?G, QW
     Route: 058
     Dates: start: 20121203
  3. Z-PEGYLATED INTERFERON-2A [Suspect]
     Dosage: UNK
  4. Z-RIBAVIRIN [Suspect]
     Indication: HEPATITIS C
     Dosage: 600 MG, BID
     Route: 048
     Dates: start: 20121126
  5. TACROLIMUS [Concomitant]
     Dosage: 1 MG, UNK
     Dates: start: 20121127, end: 20121128
  6. TACROLIMUS [Concomitant]
     Dosage: 0.5 MG, UNK
     Dates: start: 20121128, end: 20121130
  7. TACROLIMUS [Concomitant]
     Dosage: 2 MG, UNK
     Dates: start: 2009, end: 20121126
  8. TRAMADOL [Concomitant]
     Dosage: 50 MG, PRN
     Route: 048

REACTIONS (3)
  - Pain [Recovered/Resolved]
  - Nausea [Recovered/Resolved]
  - Vomiting [Recovered/Resolved]
